FAERS Safety Report 13558629 (Version 2)
Quarter: 2017Q2

REPORT INFORMATION
  Report Type: Spontaneous
  Country: US (occurrence: US)
  Receive Date: 20170518
  Receipt Date: 20170602
  Transmission Date: 20170830
  Serious: No
  Sender: FDA-Public Use
  Company Number: US-BIOGEN-2017BI00401035

PATIENT
  Sex: Female

DRUGS (1)
  1. TYSABRI [Suspect]
     Active Substance: NATALIZUMAB
     Indication: MULTIPLE SCLEROSIS
     Route: 065
     Dates: start: 20120606

REACTIONS (7)
  - Confusional state [Unknown]
  - Fatigue [Unknown]
  - Cognitive disorder [Unknown]
  - Stress [Unknown]
  - Cough [Unknown]
  - Headache [Recovered/Resolved]
  - General symptom [Unknown]
